FAERS Safety Report 7025530-8 (Version None)
Quarter: 2010Q4

REPORT INFORMATION
  Report Type: 
  Country: None (occurrence: None)
  Receive Date: 20101003
  Receipt Date: 20100920
  Transmission Date: 20110411
  Serious: Yes (Other)
  Sender: FDA-Public Use
  Company Number: PHHY2010US62966

PATIENT
  Sex: Female

DRUGS (3)
  1. RECLAST [Suspect]
     Indication: OSTEOPOROSIS POSTMENOPAUSAL
     Dosage: 5MG
     Route: 042
     Dates: start: 20100825
  2. SYNTHROID [Concomitant]
     Dosage: 125 MG, QD
     Route: 048
     Dates: start: 20100504
  3. TRIAMTERENE AND HYDROCHLOROTHIAZID [Concomitant]
     Dosage: 37.5-25 MG, QD
     Route: 048
     Dates: start: 20100525

REACTIONS (8)
  - BLOOD CREATINE PHOSPHOKINASE DECREASED [None]
  - BLOOD GLUCOSE INCREASED [None]
  - CELLULITIS [None]
  - DIARRHOEA [None]
  - FATIGUE [None]
  - HAEMATOCRIT DECREASED [None]
  - NAUSEA [None]
  - VOMITING [None]
